FAERS Safety Report 9526753 (Version 3)
Quarter: 2013Q4

REPORT INFORMATION
  Report Type: Spontaneous
  Country: US (occurrence: US)
  Receive Date: 20130916
  Receipt Date: 20131121
  Transmission Date: 20140711
  Serious: Yes (Other)
  Sender: FDA-Public Use
  Company Number: US-PFIZER INC-2013255663

PATIENT
  Age: 57 Year
  Sex: Female
  Weight: 104 kg

DRUGS (11)
  1. METFORMIN HCL [Suspect]
     Indication: TYPE 2 DIABETES MELLITUS
     Dosage: 500 MG, 2X/DAY
     Route: 048
  2. METFORMIN HCL [Suspect]
     Dosage: 1000 MG, 2X/DAY
     Route: 048
  3. CHANTIX [Suspect]
     Indication: SMOKING CESSATION THERAPY
     Dosage: 0.5 MG, DAILY X 3 DAYS
     Route: 048
     Dates: start: 20130220
  4. CHANTIX [Suspect]
     Dosage: 0.5 MG, 2X/DAY (BID X 4 DAYS)
     Route: 048
  5. CHANTIX [Suspect]
     Dosage: 1 MG, 2X/DAY (BID THEREAFTER)
     Route: 048
     Dates: end: 20130330
  6. LISINOPRIL [Concomitant]
     Indication: BLOOD PRESSURE ABNORMAL
     Dosage: 5 MG, DAILY
  7. ASPIRIN [Concomitant]
     Indication: CARDIAC DISORDER
     Dosage: 81 MG, DAILY
  8. VITAMIN D3 [Concomitant]
     Indication: VITAMIN D DEFICIENCY
     Dosage: 2000 IU, DAILY
     Route: 048
     Dates: start: 2011
  9. ATORVASTATIN CALCIUM [Concomitant]
     Indication: BLOOD CHOLESTEROL INCREASED
     Dosage: 40 MG, DAILY AT BEDTIME
     Route: 048
     Dates: start: 201301
  10. CITALOPRAM [Concomitant]
     Indication: DEPRESSION
     Dosage: 20 MG, DAILY
     Route: 048
     Dates: start: 20120229, end: 20131024
  11. BACLOFEN [Concomitant]
     Indication: BACK PAIN
     Dosage: 10 MG, 4X/DAY
     Dates: start: 201301, end: 201303

REACTIONS (4)
  - Hallucination [Recovered/Resolved]
  - Back pain [Recovered/Resolved]
  - Renal disorder [Recovered/Resolved]
  - Abnormal dreams [Recovered/Resolved]
